FAERS Safety Report 4918331-5 (Version None)
Quarter: 2006Q1

REPORT INFORMATION
  Report Type: 
  Country: None (occurrence: None)
  Receive Date: 20060217
  Receipt Date: 20060217
  Transmission Date: 20060701
  Serious: Yes (Other)
  Sender: FDA-Public Use
  Company Number: None

PATIENT
  Sex: Male
  Weight: 80.2867 kg

DRUGS (1)
  1. OXYCONTIN [Suspect]
     Dosage: 20MG BID ORAL
     Route: 048

REACTIONS (1)
  - INADEQUATE ANALGESIA [None]
